FAERS Safety Report 20453123 (Version 1)
Quarter: 2022Q1

REPORT INFORMATION
  Report Type: Spontaneous
  Country: JP (occurrence: JP)
  Receive Date: 20220210
  Receipt Date: 20220210
  Transmission Date: 20220423
  Serious: Yes (Other)
  Sender: FDA-Public Use
  Company Number: JP-PBT-004313

PATIENT
  Age: 67 Year
  Sex: Female

DRUGS (2)
  1. PRASUGREL [Suspect]
     Active Substance: PRASUGREL
     Indication: Ischaemia
     Route: 065
  2. PRASUGREL [Suspect]
     Active Substance: PRASUGREL
     Indication: Ischaemia
     Route: 065

REACTIONS (4)
  - Thrombosis [Unknown]
  - Disease progression [Unknown]
  - Aneurysm [Unknown]
  - Off label use [Unknown]
